FAERS Safety Report 9639502 (Version 4)
Quarter: 2014Q1

REPORT INFORMATION
  Report Type: Spontaneous
  Country: US (occurrence: US)
  Receive Date: 20131023
  Receipt Date: 20140209
  Transmission Date: 20141002
  Serious: Yes (Other)
  Sender: FDA-Public Use
  Company Number: US-AMGEN-USASP2013074354

PATIENT
  Age: 51 Year
  Sex: Female
  Weight: 56.5 kg

DRUGS (30)
  1. PROCRIT [Suspect]
     Indication: RENAL FAILURE CHRONIC
     Dosage: 40000 UNIT, QWK
     Route: 058
     Dates: start: 200911
  2. PROCRIT [Suspect]
     Indication: NEPHROGENIC ANAEMIA
  3. ARANESP [Suspect]
     Indication: PRODUCT USED FOR UNKNOWN INDICATION
     Dosage: 25 MG, UNK
     Route: 065
     Dates: start: 20090805, end: 20091022
  4. MYCOPHENOLATE MOFETIL ACCORD [Concomitant]
     Dosage: UNK
  5. TACROLIMUS [Concomitant]
     Dosage: 4 CAPSULES (4MG TOTAL) 2 TIMES A DAY
     Route: 048
  6. TACROLIMUS [Concomitant]
     Dosage: 3 MG, BID
  7. XANAX [Concomitant]
     Dosage: 0.125 MG, AS NECESSARY
     Route: 048
  8. PERIDEX                            /00133002/ [Concomitant]
     Dosage: 0.12 %, UNK
  9. VITAMIN D3 [Concomitant]
     Dosage: 400 UNIT, QD EVERY MORNING
     Route: 048
  10. FLEXERIL                           /00428402/ [Concomitant]
     Dosage: 10 MG, AS NECESSARY
     Route: 048
  11. ESTRACE [Concomitant]
     Dosage: 2 G, QD
     Route: 067
  12. ESTRING [Concomitant]
     Dosage: 2 MG, Q3MO
     Route: 067
  13. IRON                               /00023505/ [Concomitant]
     Dosage: 65 MG, UNK
     Route: 048
  14. LIDODERM [Concomitant]
     Dosage: 5 %, (700MG) PLACE 1 PATCH ONTO THE SKIN 1(ONE) TIME A DAY AS NEEDED
     Route: 062
  15. MAG-OX [Concomitant]
     Dosage: 400 MG, QD
     Route: 048
  16. NORCO [Concomitant]
     Dosage: 5-325 MG,  EVERY 8 HOURS AS NEEDED
     Route: 048
  17. REGLAN                             /00041902/ [Concomitant]
     Dosage: 10 MG, AS NECESSARY
     Route: 048
  18. LOPRESSOR [Concomitant]
     Dosage: TAKE 0.5 TABLETS (12.5 MG TOTAL), QD
     Route: 048
  19. LOPRESSOR [Concomitant]
     Dosage: TAKE 0.5 TABLETS (12.5 MG TOTAL), BID
  20. THERAGRAN                          /07504101/ [Concomitant]
     Dosage: TAKE 1 TABLET , QD
     Route: 048
  21. CELLCEPT                           /01275102/ [Concomitant]
     Dosage: 1 TABLET (500MG), BID
     Route: 048
  22. ZOFRAN                             /00955301/ [Concomitant]
     Dosage: 4 MG, UNK
  23. PROTONIX [Concomitant]
     Dosage: 40 MG, QD
     Route: 048
  24. PHENERGAN                          /00033001/ [Concomitant]
     Dosage: 25 MG, AS NECESSARY
     Route: 048
  25. SODIUM BICARBONATE [Concomitant]
     Dosage: UNK UNK, BID
     Route: 048
  26. PROGRAF [Concomitant]
     Dosage: 4 MG, BID
     Route: 048
  27. AMOXIL                             /00249601/ [Concomitant]
     Dosage: 875 MG, UNK
  28. CLINDESSE [Concomitant]
     Dosage: UNK
  29. TOBREX [Concomitant]
     Dosage: UNK
     Route: 047
  30. DOLOPHINE [Concomitant]
     Dosage: 20-30 MG, BID
     Route: 048

REACTIONS (14)
  - Bone marrow failure [Unknown]
  - Haemoglobin decreased [Unknown]
  - Therapeutic response decreased [Unknown]
  - Diabetic blindness [Unknown]
  - Urinary tract infection [Unknown]
  - Pain [Unknown]
  - Back pain [Unknown]
  - Procedural nausea [Unknown]
  - Procedural vomiting [Unknown]
  - Claustrophobia [Unknown]
  - Fatigue [Unknown]
  - Pancytopenia [Unknown]
  - Feeling jittery [Unknown]
  - Headache [Unknown]
